FAERS Safety Report 9840168 (Version 1)
Quarter: 2014Q1

REPORT INFORMATION
  Report Type: Report from Study
  Country: US (occurrence: US)
  Receive Date: 20140124
  Receipt Date: 20140124
  Transmission Date: 20141002
  Serious: Yes (Death)
  Sender: FDA-Public Use
  Company Number: US-ROCHE-1334667

PATIENT
  Sex: Female

DRUGS (8)
  1. AVASTIN [Suspect]
     Indication: OVARIAN CANCER
     Route: 040
     Dates: start: 20100726
  2. AVASTIN [Suspect]
     Indication: RETROPERITONEAL CANCER
  3. TOPOTECAN [Concomitant]
     Route: 040
     Dates: start: 20100726
  4. CARBOPLATIN [Concomitant]
     Route: 040
     Dates: start: 20100825
  5. TAXOTERE [Concomitant]
     Route: 040
     Dates: start: 20100825
  6. DECADRON [Concomitant]
     Dosage: ANTIEMETRICS AND SUPPORTIVE MEDICATIONS
     Route: 040
     Dates: start: 20100825
  7. BENADRYL (UNITED STATES) [Concomitant]
     Dosage: ANTIEMETICS AND SUPPORTIVE MEDICATIONS
     Route: 040
     Dates: start: 20100825
  8. ALOXI [Concomitant]
     Dosage: ANTIEMETICS AND SUPPORTIVE MEDICATIONS
     Route: 040
     Dates: start: 20100825

REACTIONS (5)
  - Disease progression [Fatal]
  - Nausea [Unknown]
  - Fatigue [Unknown]
  - Weight decreased [Unknown]
  - Malaise [Unknown]
